FAERS Safety Report 9667156 (Version 1)
Quarter: 2013Q4

REPORT INFORMATION
  Report Type: Spontaneous
  Country: US (occurrence: US)
  Receive Date: 20131104
  Receipt Date: 20131104
  Transmission Date: 20140711
  Serious: No
  Sender: FDA-Public Use
  Company Number: US-BIOGENIDEC-2013BI090290

PATIENT
  Age: 58 Year
  Sex: Female

DRUGS (1)
  1. TECFIDERA [Suspect]
     Indication: MULTIPLE SCLEROSIS
     Dates: start: 20130816

REACTIONS (4)
  - Dizziness [Recovered/Resolved]
  - Vision blurred [Recovered/Resolved]
  - Heart rate increased [Recovered/Resolved]
  - Poor quality sleep [Recovered/Resolved]
